FAERS Safety Report 4709634-8 (Version None)
Quarter: 2005Q3

REPORT INFORMATION
  Report Type: 
  Country: None (occurrence: None)
  Receive Date: 20050706
  Receipt Date: 20050706
  Transmission Date: 20060218
  Serious: Yes (Life-Threatening)
  Sender: FDA-Public Use
  Company Number: None

PATIENT
  Age: 38 Year
  Sex: Male
  Weight: 90.7194 kg

DRUGS (3)
  1. LEXAPRO [Suspect]
     Dosage: 75 MG   DAILY   ORAL
     Route: 048
     Dates: start: 20050330, end: 20050426
  2. DIOVAN [Concomitant]
  3. WELLBUTRIN [Concomitant]

REACTIONS (7)
  - AMNESIA [None]
  - CONDITION AGGRAVATED [None]
  - DEPRESSION [None]
  - DISORIENTATION [None]
  - NERVOUSNESS [None]
  - SUICIDAL IDEATION [None]
  - TREMOR [None]
